FAERS Safety Report 7677465-5 (Version None)
Quarter: 2011Q3

REPORT INFORMATION
  Report Type: 
  Country: None (occurrence: None)
  Receive Date: 20110811
  Receipt Date: 20110427
  Transmission Date: 20111222
  Serious: Yes (Other)
  Sender: FDA-Public Use
  Company Number: US-BRISTOL-MYERS SQUIBB COMPANY-15637309

PATIENT
  Age: 20 Year
  Sex: Male
  Weight: 95 kg

DRUGS (3)
  1. TRUVADA [Concomitant]
  2. REYATAZ [Suspect]
     Indication: HIV INFECTION
     Dates: start: 20110314, end: 20110325
  3. NORVIR [Concomitant]

REACTIONS (1)
  - OCULAR ICTERUS [None]
